FAERS Safety Report 7070460-9 (Version None)
Quarter: 2010Q4

REPORT INFORMATION
  Report Type: 
  Country: None (occurrence: None)
  Receive Date: 20101026
  Receipt Date: 20101026
  Transmission Date: 20110411
  Serious: Yes (Hospitalization)
  Sender: FDA-Public Use
  Company Number: None

PATIENT
  Age: 70 Year
  Sex: Female
  Weight: 80 kg

DRUGS (2)
  1. ALLOPURINOL [Suspect]
     Indication: GOUT
     Dosage: 300 MG DAILY BY MOUTH
     Route: 048
     Dates: start: 20100330, end: 20100831
  2. ALLOPURINOL [Suspect]
     Indication: PAIN
     Dosage: 300 MG DAILY BY MOUTH
     Route: 048
     Dates: start: 20100330, end: 20100831

REACTIONS (1)
  - DERMATITIS EXFOLIATIVE [None]
